FAERS Safety Report 8388279-5 (Version None)
Quarter: 2012Q2

REPORT INFORMATION
  Report Type: 
  Country: None (occurrence: None)
  Receive Date: 20120525
  Receipt Date: 20120511
  Transmission Date: 20120825
  Serious: Yes (Other)
  Sender: FDA-Public Use
  Company Number: CHPA2012US010978

PATIENT
  Sex: Female

DRUGS (1)
  1. EXCEDRIN EXTRA STRENGTH TABLETS [Suspect]
     Indication: HEADACHE
     Dosage: 1 DF, PRN
     Route: 048

REACTIONS (7)
  - UNDERDOSE [None]
  - NEOPLASM MALIGNANT [None]
  - CONSTIPATION [None]
  - ABDOMINAL PAIN [None]
  - DIVERTICULUM [None]
  - NEPHROLITHIASIS [None]
  - URINARY TRACT INFECTION [None]
